FAERS Safety Report 9100821 (Version 1)
Quarter: 2013Q1

REPORT INFORMATION
  Report Type: Report from Study
  Country: US (occurrence: US)
  Receive Date: 20130215
  Receipt Date: 20130215
  Transmission Date: 20140127
  Serious: Yes (Hospitalization)
  Sender: FDA-Public Use
  Company Number: US-ROCHE-1191359

PATIENT
  Age: 50 Year
  Sex: Female
  Weight: 60.33 kg

DRUGS (3)
  1. BEVACIZUMAB [Suspect]
     Indication: NEOPLASM MALIGNANT
     Dosage: OVER 30-90 MIN ON DAY 1, BEGINNING WITH CYCLE 2; LAST ADMINISTERED ON: 07/DEC/2012
     Route: 042
     Dates: start: 20110729, end: 20130121
  2. PACLITAXEL [Suspect]
     Indication: NEOPLASM MALIGNANT
     Dosage: OVER 1 HR ON DAYS 1, 8 + 15; LAST ADMINISTERED ON: 23/NOV/2011
     Route: 042
     Dates: start: 20110729, end: 20130121
  3. CARBOPLATIN [Suspect]
     Indication: NEOPLASM MALIGNANT
     Dosage: AUC 6 IP ON DAY 1, LAST ADMINISTERED ON: 23/NOV/2011
     Route: 033
     Dates: start: 20110729, end: 20130121

REACTIONS (3)
  - Angina pectoris [Recovered/Resolved]
  - Myocardial infarction [Recovered/Resolved]
  - Troponin I increased [Recovered/Resolved]
